FAERS Safety Report 9916894 (Version 2)
Quarter: 2020Q3

REPORT INFORMATION
  Report Type: Report from Study
  Country: GB (occurrence: GB)
  Receive Date: 20140221
  Receipt Date: 20140725
  Transmission Date: 20201105
  Serious: Yes (Death, Other)
  Sender: FDA-Public Use
  Company Number: PHHY2014GB017217

PATIENT
  Age: 60 Year
  Sex: Male

DRUGS (22)
  1. 5?FLUOROURACIL [Suspect]
     Active Substance: FLUOROURACIL
     Dosage: 750 MG, QW2
     Route: 040
     Dates: start: 20130815
  2. ONARTUZUMAB. [Suspect]
     Active Substance: ONARTUZUMAB
     Dosage: 860 MG, QW2
     Route: 042
     Dates: start: 20130912
  3. BECOTIDE [Concomitant]
     Active Substance: BECLOMETHASONE DIPROPIONATE
     Indication: ASTHMA
     Route: 055
  4. CHLORHEXIDINE [Concomitant]
     Active Substance: CHLORHEXIDINE
     Indication: MOUTH ULCERATION
     Dosage: 10 ML, UNK
     Route: 048
     Dates: start: 20130814
  5. OXALIPLATIN. [Suspect]
     Active Substance: OXALIPLATIN
     Indication: GASTROOESOPHAGEAL CANCER
     Dosage: 90 MG, QW2
     Route: 042
     Dates: start: 20130620
  6. FOLINIC ACID [Suspect]
     Active Substance: LEUCOVORIN
     Dosage: 750 MG, QW2
     Route: 042
     Dates: start: 20130912
  7. 5?FLUOROURACIL [Suspect]
     Active Substance: FLUOROURACIL
     Dosage: 3400 MG, QW2
     Route: 042
     Dates: start: 20130620
  8. 5?FLUOROURACIL [Suspect]
     Active Substance: FLUOROURACIL
     Dosage: 3400 MG, QW2
     Route: 042
     Dates: start: 20130912
  9. TRAMADOL. [Concomitant]
     Active Substance: TRAMADOL
     Indication: PAIN IN EXTREMITY
     Dosage: 50 MG, UNK
     Route: 048
  10. AUGMENTIN [Concomitant]
     Active Substance: AMOXICILLIN\CLAVULANATE POTASSIUM
     Indication: LOWER RESPIRATORY TRACT INFECTION
     Dosage: 625 MG, UNK
     Route: 048
     Dates: start: 20130903, end: 20130909
  11. ONDANSETRON [Concomitant]
     Active Substance: ONDANSETRON
     Indication: PREMEDICATION
     Dosage: 8 MG, UNK
     Route: 042
     Dates: start: 20130620
  12. FOLINIC ACID [Suspect]
     Active Substance: LEUCOVORIN
     Indication: GASTROOESOPHAGEAL CANCER
     Dosage: 750 MG, QW2
     Route: 042
     Dates: start: 20130620
  13. 5?FLUOROURACIL [Suspect]
     Active Substance: FLUOROURACIL
     Indication: GASTROOESOPHAGEAL CANCER
     Dosage: 750 MG, QW2
     Route: 040
     Dates: start: 20130620
  14. VENTOLIN [Concomitant]
     Active Substance: ALBUTEROL SULFATE
     Indication: ASTHMA
     Route: 055
  15. FERROUS SULFATE. [Concomitant]
     Active Substance: FERROUS SULFATE
     Indication: ANAEMIA
     Dosage: 200 MG, UNK
     Route: 048
  16. OMEPRAZOLE. [Concomitant]
     Active Substance: OMEPRAZOLE
     Indication: DYSPEPSIA
     Dosage: 20 MG, UNK
     Route: 048
  17. COCODAMOL [Concomitant]
     Active Substance: ACETAMINOPHEN\CODEINE PHOSPHATE
     Indication: PAIN IN EXTREMITY
     Route: 048
     Dates: start: 20130607
  18. DEXAMETHASONE. [Concomitant]
     Active Substance: DEXAMETHASONE
     Indication: PREMEDICATION
     Dosage: 8 MG, UNK
     Route: 042
     Dates: start: 20130620
  19. SPIRONOLACTONE. [Concomitant]
     Active Substance: SPIRONOLACTONE
     Indication: BLOOD ALBUMIN DECREASED
     Dosage: 25 MG, UNK
     Route: 048
     Dates: start: 20130924
  20. ONARTUZUMAB. [Suspect]
     Active Substance: ONARTUZUMAB
     Indication: GASTROOESOPHAGEAL CANCER
     Dosage: 860 MG, QW2
     Route: 042
     Dates: start: 20130620
  21. OXALIPLATIN. [Suspect]
     Active Substance: OXALIPLATIN
     Dosage: 90 MG, QW2
     Route: 042
     Dates: start: 20130912
  22. TINZAPARIN [Concomitant]
     Active Substance: TINZAPARIN
     Indication: DEEP VEIN THROMBOSIS
     Dosage: 0.6 ML, UNK
     Route: 058
     Dates: start: 20130716

REACTIONS (8)
  - Neoplasm progression [Unknown]
  - Dyspnoea [Unknown]
  - Oedema peripheral [Unknown]
  - Oesophageal cancer metastatic [Fatal]
  - Dysphagia [Unknown]
  - Pulseless electrical activity [Unknown]
  - Renal failure [Unknown]
  - Acute coronary syndrome [Fatal]

NARRATIVE: CASE EVENT DATE: 20130930
